FAERS Safety Report 20793695 (Version 7)
Quarter: 2024Q2

REPORT INFORMATION
  Report Type: Other
  Country: CA (occurrence: None)
  Receive Date: 20220506
  Receipt Date: 20240605
  Transmission Date: 20240716
  Serious: No
  Sender: FDA-Public Use
  Company Number: CA-ROCHE-3091062

PATIENT
  Age: 54 Year
  Sex: Female

DRUGS (4)
  1. OCREVUS [Suspect]
     Active Substance: OCRELIZUMAB
     Indication: Relapsing-remitting multiple sclerosis
     Dosage: 300 MG AT DAY 0 AND 14, THEN 600 MG EVERY 6 MONTH
     Route: 042
     Dates: start: 20181217
  2. PAXLOVID [Concomitant]
     Active Substance: NIRMATRELVIR\RITONAVIR
     Dosage: END DATE:04-MAY-2022
     Dates: end: 20220504
  3. TYLENOL [Concomitant]
     Active Substance: ACETAMINOPHEN
  4. GRAVOL [Concomitant]
     Active Substance: DIMENHYDRINATE

REACTIONS (11)
  - SARS-CoV-2 test positive [Recovered/Resolved]
  - Immobile [Recovered/Resolved]
  - Cough [Not Recovered/Not Resolved]
  - Malaise [Not Recovered/Not Resolved]
  - Poor venous access [Unknown]
  - Sinus disorder [Unknown]
  - Hypersensitivity [Unknown]
  - Off label use [Unknown]
  - Multiple sclerosis [Unknown]
  - Bronchitis [Unknown]
  - Gastrooesophageal reflux disease [Unknown]

NARRATIVE: CASE EVENT DATE: 20220427
